FAERS Safety Report 25814336 (Version 1)
Quarter: 2025Q3

REPORT INFORMATION
  Report Type: Spontaneous
  Country: JP (occurrence: JP)
  Receive Date: 20250917
  Receipt Date: 20250917
  Transmission Date: 20251021
  Serious: Yes (Other)
  Sender: BAUSCH AND LOMB
  Company Number: JP-BAUSCH-BH-2025-017649

PATIENT
  Age: 6 Decade
  Sex: Female

DRUGS (5)
  1. BRODALUMAB [Suspect]
     Active Substance: BRODALUMAB
     Indication: Pustular psoriasis
  2. USTEKINUMAB [Suspect]
     Active Substance: USTEKINUMAB
     Indication: Pustular psoriasis
  3. INFLIXIMAB [Suspect]
     Active Substance: INFLIXIMAB
     Indication: Pustular psoriasis
  4. SECUKINUMAB [Suspect]
     Active Substance: SECUKINUMAB
     Indication: Pustular psoriasis
  5. IXEKIZUMAB [Suspect]
     Active Substance: IXEKIZUMAB
     Indication: Pustular psoriasis

REACTIONS (2)
  - Inflammatory bowel disease [Unknown]
  - Drug ineffective [Unknown]
